FAERS Safety Report 7380527-3 (Version None)
Quarter: 2011Q1

REPORT INFORMATION
  Report Type: 
  Country: None (occurrence: None)
  Receive Date: 20110321
  Receipt Date: 20110304
  Transmission Date: 20110831
  Serious: Yes (Other)
  Sender: FDA-Public Use
  Company Number: AUR-APL-2010-01801

PATIENT
  Age: 47 Year
  Sex: Female
  Weight: 141.5223 kg

DRUGS (15)
  1. PRISTIQ [Suspect]
     Dosage: 50MG, DAILY, ORAL
     Route: 048
     Dates: start: 20100704
  2. NEXIUM [Suspect]
     Dosage: PRN
  3. FLOVENT [Suspect]
     Indication: ASTHMA
  4. MIRALAX [Concomitant]
  5. SIMVASTATIN [Suspect]
     Indication: BLOOD CHOLESTEROL INCREASED
  6. ADVAIR HFA [Suspect]
     Indication: ASTHMA
  7. CYMBALTA [Suspect]
     Indication: PAIN
  8. MIRTAZAPINE [Suspect]
  9. ATROVENT [Suspect]
     Indication: ASTHMA
  10. ACETYLSALICYLIC ACID SRT [Suspect]
     Indication: PAIN
  11. XANAX [Suspect]
     Indication: INSOMNIA
     Dosage: 1.2 TAB, TYPICALLY TOOK EVERY OTHER DAY, ORAL
     Route: 048
     Dates: start: 20080101
  12. XANAX [Suspect]
     Indication: ANXIETY
     Dosage: 1.2 TAB, TYPICALLY TOOK EVERY OTHER DAY, ORAL
     Route: 048
     Dates: start: 20080101
  13. LEVOXYL [Suspect]
     Dosage: 100 MG
  14. NEURONTIN [Suspect]
     Indication: NEUROPATHY PERIPHERAL
     Dosage: 300 MG, DAILY, ORAL
     Route: 048
  15. ADVIL LIQUI-GELS [Suspect]
     Indication: PAIN

REACTIONS (4)
  - PAIN [None]
  - BLOOD GLUCOSE DECREASED [None]
  - DYSPEPSIA [None]
  - ULCER [None]
